FAERS Safety Report 6289558-8 (Version None)
Quarter: 2009Q3

REPORT INFORMATION
  Report Type: 
  Country: None (occurrence: None)
  Receive Date: 20090730
  Receipt Date: 20090720
  Transmission Date: 20100115
  Serious: Yes (Hospitalization)
  Sender: FDA-Public Use
  Company Number: US-ALLERGAN-0707781US

PATIENT
  Age: 64 Year
  Sex: Male

DRUGS (3)
  1. BOTOX [Suspect]
     Indication: DYSTONIA
     Dosage: 235 UNITS, SINGLE
     Route: 030
     Dates: start: 20070717, end: 20070717
  2. BOTOX [Suspect]
     Dosage: 80 UNITS, SINGLE
     Route: 030
     Dates: start: 20070110, end: 20070110
  3. BOTOX [Suspect]
     Dosage: 220 UNITS, SINGLE
     Route: 030
     Dates: start: 20070403, end: 20070403

REACTIONS (9)
  - ACUTE DISSEMINATED ENCEPHALOMYELITIS [None]
  - ATAXIA [None]
  - CHILLS [None]
  - DRUG HYPERSENSITIVITY [None]
  - MENTAL STATUS CHANGES [None]
  - PYREXIA [None]
  - RASH GENERALISED [None]
  - SOMNOLENCE [None]
  - URINARY INCONTINENCE [None]
